FAERS Safety Report 14970097 (Version 1)
Quarter: 2018Q2

REPORT INFORMATION
  Report Type: Spontaneous
  Country: US (occurrence: US)
  Receive Date: 20180530
  Receipt Date: 20180530
  Transmission Date: 20180711
  Serious: No
  Sender: FDA-Public Use
  Company Number: US-KADMON PHARMACEUTICALS, LLC-KAD201709-001009

PATIENT
  Age: 34 Year
  Sex: Male

DRUGS (5)
  1. RIBAVIRIN. [Suspect]
     Active Substance: RIBAVIRIN
     Indication: CHRONIC HEPATITIS C
     Dates: start: 20140415
  2. CETIRIZINE HYDROCHLORIDE. [Concomitant]
     Active Substance: CETIRIZINE HYDROCHLORIDE
  3. SOFOSBUVIR [Suspect]
     Active Substance: SOFOSBUVIR
     Indication: CHRONIC HEPATITIS C
     Dates: start: 20140415
  4. OMEPRAZOLE. [Concomitant]
     Active Substance: OMEPRAZOLE
  5. PEGINTERFERON ALFA-2A. [Suspect]
     Active Substance: PEGINTERFERON ALFA-2A
     Indication: CHRONIC HEPATITIS C
     Dosage: PRE-FILLED SYRINGE
     Route: 058
     Dates: start: 20140415

REACTIONS (7)
  - Headache [Recovered/Resolved]
  - Pain [Unknown]
  - Mood swings [Unknown]
  - Fatigue [Unknown]
  - Chills [Recovered/Resolved]
  - Influenza like illness [Unknown]
  - Hot flush [Recovered/Resolved]
